FAERS Safety Report 10062505 (Version 3)
Quarter: 2014Q3

REPORT INFORMATION
  Report Type: Spontaneous
  Country: US (occurrence: US)
  Receive Date: 20140407
  Receipt Date: 20140813
  Transmission Date: 20150326
  Serious: Yes (Hospitalization)
  Sender: FDA-Public Use
  Company Number: US-BAYER-2014-050772

PATIENT
  Age: 33 Year
  Sex: Female
  Weight: 113.38 kg

DRUGS (3)
  1. BENADRYL [Concomitant]
     Active Substance: DIPHENHYDRAMINE HYDROCHLORIDE
     Indication: MULTIPLE ALLERGIES
     Dosage: UNK
     Dates: start: 201211
  2. MIRENA [Suspect]
     Active Substance: LEVONORGESTREL
     Indication: CONTRACEPTION
     Dosage: 20 MCG/24HR, CONT
     Route: 015
     Dates: start: 20130205, end: 20130502
  3. METFORMIN [Concomitant]
     Active Substance: METFORMIN HYDROCHLORIDE
     Indication: GESTATIONAL DIABETES
     Dosage: UNK
     Dates: start: 201303

REACTIONS (14)
  - Uterine perforation [Recovered/Resolved]
  - Alopecia [None]
  - Injury [Recovered/Resolved]
  - Weight increased [None]
  - Emotional distress [None]
  - Medical device pain [Recovered/Resolved]
  - Infection [None]
  - Device dislocation [Recovered/Resolved]
  - Dyspareunia [None]
  - Abdominal pain lower [Recovered/Resolved]
  - Anxiety [None]
  - Post procedural discomfort [Recovered/Resolved]
  - Depression [None]
  - Abdominal pain upper [Recovered/Resolved]

NARRATIVE: CASE EVENT DATE: 201302
